FAERS Safety Report 23422515 (Version 2)
Quarter: 2024Q1

REPORT INFORMATION
  Report Type: Spontaneous
  Country: US (occurrence: US)
  Receive Date: 20240119
  Receipt Date: 20240130
  Transmission Date: 20240410
  Serious: No
  Sender: FDA-Public Use
  Company Number: US-Vifor (International) Inc.-VIT-2024-00225

PATIENT
  Age: 53 Year
  Sex: Male
  Weight: 94.5 kg

DRUGS (3)
  1. MIRCERA [Suspect]
     Active Substance: METHOXY POLYETHYLENE GLYCOL-EPOETIN BETA
     Indication: Therapy change
     Dosage: 400 G EVERY 3-4 WEEKS
     Route: 042
     Dates: start: 202312
  2. CATHFLO ACTIVASE [Concomitant]
     Active Substance: ALTEPLASE
     Indication: Catheter directed thrombolysis
     Dosage: 1 VIAL IN EACH LIMB ;ONGOING: UNKNOWN
     Route: 065
     Dates: start: 20230413
  3. HEPARIN [Concomitant]
     Active Substance: HEPARIN SODIUM
     Indication: Catheter directed thrombolysis
     Dosage: HEPARIN PORT
     Route: 065

REACTIONS (2)
  - Off label use [Unknown]
  - No adverse event [Unknown]

NARRATIVE: CASE EVENT DATE: 20231201
